FAERS Safety Report 6840676-2 (Version None)
Quarter: 2010Q3

REPORT INFORMATION
  Report Type: 
  Country: None (occurrence: None)
  Receive Date: 20100714
  Receipt Date: 20100709
  Transmission Date: 20110219
  Serious: Yes (Death, Life-Threatening, Hospitalization)
  Sender: FDA-Public Use
  Company Number: PL-ROCHE-657658

PATIENT
  Sex: Male
  Weight: 53 kg

DRUGS (12)
  1. BLINDED BEVACIZUMAB [Suspect]
     Indication: DIFFUSE LARGE B-CELL LYMPHOMA
     Dosage: LAST DOSE PRIOR TO SAE: 08 SEP 2009, FORM: INFUSION
     Route: 042
     Dates: start: 20090908
  2. BLINDED BEVACIZUMAB [Suspect]
     Dosage: LAST DOSE PRIOR TO SAE: 8 OCTOBER 2009
     Route: 042
     Dates: start: 20091008
  3. RITUXIMAB [Suspect]
     Indication: DIFFUSE LARGE B-CELL LYMPHOMA
     Dosage: LAST DOSE PRIOR TO SAE: 08 SEPT 2009 FORM: INFUSION
     Route: 042
     Dates: start: 20090908
  4. RITUXIMAB [Suspect]
     Dosage: LAST DOSE PRIOR TO SAE: 08 OCTOBER 2009 FORM: INFUSION
     Route: 042
     Dates: start: 20091008
  5. CYCLOPHOSPHAMIDE [Suspect]
     Indication: DIFFUSE LARGE B-CELL LYMPHOMA
     Dosage: LAST DOSE PRIOR TO SAE: 08 SEPTEMBER 2009, FORM: INFUSION
     Route: 042
     Dates: start: 20090908
  6. CYCLOPHOSPHAMIDE [Suspect]
     Dosage: LAST DOSE PRIOR TO SAE: 08 OCTOBER 2009, FORM: INFUSION
     Route: 042
     Dates: start: 20091008
  7. DOXORUBICIN HCL [Suspect]
     Indication: DIFFUSE LARGE B-CELL LYMPHOMA
     Dosage: FORM: INFUSION
     Route: 042
  8. DOXORUBICIN HCL [Suspect]
     Dosage: FORM: INFUSION
     Route: 042
     Dates: start: 20091008
  9. ONCOVIN [Suspect]
     Indication: DIFFUSE LARGE B-CELL LYMPHOMA
     Dosage: FORM: INFUSION, LAST DOSE PRIOR TO SAE: 08 SEPT 2009
     Route: 042
     Dates: start: 20090908
  10. ONCOVIN [Suspect]
     Dosage: FORM: INFUSION, LAST DOSE PRIOR TO SAE: 08 OCTOBER 2009
     Route: 042
     Dates: start: 20091008
  11. PREDNISONE [Suspect]
     Indication: DIFFUSE LARGE B-CELL LYMPHOMA
     Route: 048
  12. PREDNISONE [Suspect]
     Dosage: FREQUENCY: ID. LAST DOSE PRIOR TO SAE: 11 OCTOBER 2009
     Route: 048
     Dates: start: 20091008

REACTIONS (2)
  - PERITONITIS [None]
  - SPLENIC ABSCESS [None]
